FAERS Safety Report 16844765 (Version 2)
Quarter: 2020Q1

REPORT INFORMATION
  Report Type: Report from Study
  Country: FR (occurrence: FR)
  Receive Date: 20190924
  Receipt Date: 20200121
  Transmission Date: 20200409
  Serious: Yes (Other)
  Sender: FDA-Public Use
  Company Number: FR-EISAI MEDICAL RESEARCH-EC-2019-062472

PATIENT
  Age: 59 Year
  Sex: Female

DRUGS (2)
  1. LENVATINIB [Suspect]
     Active Substance: LENVATINIB
     Indication: THYROID CANCER
     Dosage: BLINDED DOSE
     Route: 048
     Dates: start: 20180710, end: 20181023
  2. LENVATINIB [Suspect]
     Active Substance: LENVATINIB
     Dosage: BLINDED DOSE
     Route: 048
     Dates: start: 20181107

REACTIONS (1)
  - Vomiting [Recovered/Resolved]

NARRATIVE: CASE EVENT DATE: 20181015
